FAERS Safety Report 9720471 (Version 1)
Quarter: 2013Q4

REPORT INFORMATION
  Report Type: Spontaneous
  Country: FR (occurrence: FR)
  Receive Date: 20131129
  Receipt Date: 20131129
  Transmission Date: 20140711
  Serious: Yes (Hospitalization)
  Sender: FDA-Public Use
  Company Number: FR-JNJFOC-20131115546

PATIENT
  Age: 54 Year
  Sex: Male

DRUGS (5)
  1. REMICADE [Suspect]
     Indication: PSORIASIS
     Route: 042
     Dates: start: 20110621, end: 20130813
  2. TERBINAFINE [Concomitant]
     Indication: FUNGAL INFECTION
     Route: 048
     Dates: end: 20130831
  3. SEROPLEX [Concomitant]
     Indication: DEPRESSION
     Route: 048
     Dates: start: 20110601, end: 20130831
  4. BUSPAR [Concomitant]
     Indication: ANXIETY
     Route: 048
     Dates: start: 20110601, end: 20130831
  5. TERCIAN [Concomitant]
     Route: 048
     Dates: start: 20110601, end: 20130831

REACTIONS (2)
  - Convulsion [Recovered/Resolved]
  - Cerebral venous thrombosis [Recovered/Resolved]
